FAERS Safety Report 8349290-3 (Version None)
Quarter: 2012Q2

REPORT INFORMATION
  Report Type: 
  Country: None (occurrence: None)
  Receive Date: 20120510
  Receipt Date: 20120508
  Transmission Date: 20120825
  Serious: Yes (Other)
  Sender: FDA-Public Use
  Company Number: PHFR2012IE001327

PATIENT
  Sex: Male

DRUGS (1)
  1. CLOZARIL [Suspect]
     Indication: SCHIZOPHRENIA
     Dosage: 600 UKN, (100 BD + 400 NOCTE)
     Route: 048
     Dates: start: 20040624

REACTIONS (1)
  - URINARY TRACT INFECTION [None]
